FAERS Safety Report 7941926-1 (Version None)
Quarter: 2011Q4

REPORT INFORMATION
  Report Type: 
  Country: None (occurrence: None)
  Receive Date: 20111128
  Receipt Date: 20111124
  Transmission Date: 20120403
  Serious: Yes (Other)
  Sender: FDA-Public Use
  Company Number: DE-SANOFI-AVENTIS-2011SA065246

PATIENT
  Age: 78 Year
  Sex: Male
  Weight: 72 kg

DRUGS (5)
  1. BISOPROLOL FUMARATE [Concomitant]
     Route: 065
  2. ASTHMA-SPRAY [Concomitant]
     Indication: ASTHMA
     Route: 065
  3. MULTAQ [Suspect]
     Indication: ATRIAL FIBRILLATION
     Route: 048
     Dates: start: 20110801, end: 20111001
  4. LEVOTHYROXINE SODIUM [Concomitant]
     Route: 065
  5. MARCUMAR [Concomitant]
     Route: 065

REACTIONS (4)
  - PAIN [None]
  - HEMIPARESIS [None]
  - DYSGEUSIA [None]
  - MUSCULOSKELETAL STIFFNESS [None]
